FAERS Safety Report 12307076 (Version 1)
Quarter: 2016Q2

REPORT INFORMATION
  Report Type: Spontaneous
  Country: US (occurrence: US)
  Receive Date: 20160426
  Receipt Date: 20160426
  Transmission Date: 20160815
  Serious: No
  Sender: FDA-Public Use
  Company Number: US-ALKERMES INC.-ALK-2016-000039

PATIENT

DRUGS (3)
  1. VIVITROL [Suspect]
     Active Substance: NALTREXONE
     Indication: DRUG DEPENDENCE
     Dosage: 380 MG, Q24DAYS
     Route: 030
     Dates: start: 201511, end: 201511
  2. VIVITROL [Suspect]
     Active Substance: NALTREXONE
     Dosage: 380 MG, Q24DAYS
     Route: 030
     Dates: start: 201512, end: 201512
  3. VIVITROL [Suspect]
     Active Substance: NALTREXONE
     Dosage: 380 MG, Q24DAYS
     Route: 030
     Dates: start: 201601

REACTIONS (5)
  - Drug dependence [Unknown]
  - Drug effect decreased [Not Recovered/Not Resolved]
  - Drug abuse [Unknown]
  - Euphoric mood [Unknown]
  - Product quality issue [Recovered/Resolved]

NARRATIVE: CASE EVENT DATE: 201512
